FAERS Safety Report 7484139-2 (Version None)
Quarter: 2011Q2

REPORT INFORMATION
  Report Type: 
  Country: None (occurrence: None)
  Receive Date: 20110513
  Receipt Date: 20110513
  Transmission Date: 20111010
  Serious: Yes (Other)
  Sender: FDA-Public Use
  Company Number: None

PATIENT
  Age: 41 Year
  Sex: Male
  Weight: 61.2356 kg

DRUGS (2)
  1. BACTRIM [Suspect]
     Indication: PNEUMONIA
     Dosage: ONE DS QD PO
     Route: 048
     Dates: start: 20110424, end: 20110508
  2. EFAVIRENZ [Suspect]
     Indication: HIV INFECTION
     Dosage: 600MG QD PO
     Route: 048
     Dates: start: 20110424, end: 20110508

REACTIONS (1)
  - RASH [None]
